FAERS Safety Report 5892865-1 (Version None)
Quarter: 2008Q3

REPORT INFORMATION
  Report Type: 
  Country: None (occurrence: None)
  Receive Date: 20080923
  Receipt Date: 20080915
  Transmission Date: 20090109
  Serious: Yes (Hospitalization)
  Sender: FDA-Public Use
  Company Number: US-EISAI MEDICAL RESEARCH-E2090-00550-SPO-US

PATIENT
  Age: 24 Year
  Sex: Male

DRUGS (1)
  1. ZONEGRAN [Suspect]
     Indication: CONVULSION
     Route: 048

REACTIONS (1)
  - NEPHROPATHY [None]
